FAERS Safety Report 11012649 (Version 1)
Quarter: 2015Q2

REPORT INFORMATION
  Report Type: Spontaneous
  Country: US (occurrence: None)
  Receive Date: 20150407
  Receipt Date: 20150407
  Transmission Date: 20150821
  Serious: Yes (Hospitalization, Other)
  Sender: FDA-Public Use
  Company Number: LH201400493

PATIENT
  Age: 27 Year
  Sex: Female

DRUGS (2)
  1. PRENANTAL VITAMINS (ASCORBIC ACID, BIOTIN, MINERALS NOS, NICOTINIC ACID, RETINOL, TOCOPHEROL, VITAMINS B NOS, VITAMIN D NOS) [Concomitant]
  2. MAKENA [Suspect]
     Active Substance: HYDROXYPROGESTERONE CAPROATE
     Indication: PREMATURE DELIVERY
     Route: 030
     Dates: start: 20140703, end: 201411

REACTIONS (5)
  - Uterine contractions during pregnancy [None]
  - Cervix enlargement [None]
  - Premature labour [None]
  - Premature rupture of membranes [None]
  - Premature delivery [None]

NARRATIVE: CASE EVENT DATE: 2014
